FAERS Safety Report 4597848-X (Version None)
Quarter: 2005Q1

REPORT INFORMATION
  Report Type: 
  Country: None (occurrence: None)
  Receive Date: 20050125
  Receipt Date: 20041109
  Transmission Date: 20050727
  Serious: No
  Sender: FDA-Public Use
  Company Number: USA030230180

PATIENT
  Age: 76 Year
  Sex: Female
  Weight: 56 kg

DRUGS (8)
  1. FORTEO [Suspect]
     Indication: OSTEOPOROSIS
     Dosage: 20 UG DAY
     Dates: start: 20030226
  2. ALLOPURINOL [Concomitant]
  3. COMBIVENT [Concomitant]
  4. LESCOL [Concomitant]
  5. NORVASC [Concomitant]
  6. PULMICORT [Concomitant]
  7. SYNTHROID [Concomitant]
  8. CELEBREX [Concomitant]

REACTIONS (4)
  - BACK PAIN [None]
  - DYSPNOEA [None]
  - HEADACHE [None]
  - SENSATION OF PRESSURE [None]
